FAERS Safety Report 12234748 (Version 6)
Quarter: 2016Q3

REPORT INFORMATION
  Report Type: Spontaneous
  Country: US (occurrence: US)
  Receive Date: 20160404
  Receipt Date: 20160905
  Transmission Date: 20161109
  Serious: Yes (Other)
  Sender: FDA-Public Use
  Company Number: US-TEVA-645089USA

PATIENT
  Age: 28 Year
  Sex: Female

DRUGS (11)
  1. WELLBUTRIN [Concomitant]
     Active Substance: BUPROPION HYDROCHLORIDE
  2. PHENERGAN [Concomitant]
     Active Substance: PROMETHAZINE HYDROCHLORIDE
  3. NORTRIPTYLINE [Concomitant]
     Active Substance: NORTRIPTYLINE
  4. ZECUITY [Suspect]
     Active Substance: SUMATRIPTAN SUCCINATE
     Indication: MIGRAINE
     Dosage: 6.5 MG / 4 HOURS
     Route: 062
     Dates: start: 201603, end: 201603
  5. AMITRIPTYLINE [Concomitant]
     Active Substance: AMITRIPTYLINE
  6. NUCENTRA [Concomitant]
     Indication: NECK PAIN
  7. VERAPAMIL [Concomitant]
     Active Substance: VERAPAMIL HYDROCHLORIDE
  8. TYLENOL [Concomitant]
     Active Substance: ACETAMINOPHEN
  9. AMBIEN [Concomitant]
     Active Substance: ZOLPIDEM TARTRATE
  10. ZECUITY [Suspect]
     Active Substance: SUMATRIPTAN SUCCINATE
     Route: 062
     Dates: start: 201601, end: 201601
  11. TOPAMAX [Concomitant]
     Active Substance: TOPIRAMATE

REACTIONS (16)
  - Application site scar [Recovered/Resolved]
  - Application site pain [Recovered/Resolved]
  - Application site erythema [Recovered/Resolved]
  - Application site burn [Recovered/Resolved]
  - Application site irritation [Recovered/Resolved]
  - Wrong technique in product usage process [Unknown]
  - Product leakage [Unknown]
  - Application site warmth [Recovered/Resolved]
  - Drug ineffective [Unknown]
  - Application site paraesthesia [Recovered/Resolved]
  - Application site discolouration [Recovered/Resolved]
  - Product adhesion issue [Unknown]
  - Application site rash [Recovered/Resolved]
  - Application site pruritus [Recovered/Resolved]
  - Migraine [Not Recovered/Not Resolved]
  - Application site scab [Recovered/Resolved]

NARRATIVE: CASE EVENT DATE: 20160208
